FAERS Safety Report 15440637 (Version 1)
Quarter: 2018Q3

REPORT INFORMATION
  Report Type: Spontaneous
  Country: US (occurrence: US)
  Receive Date: 20180925
  Receipt Date: 20180925
  Transmission Date: 20181010
  Serious: Yes (Other)
  Sender: FDA-Public Use
  Company Number: None

PATIENT
  Age: 62 Year
  Sex: Male

DRUGS (1)
  1. SUTENT [Suspect]
     Active Substance: SUNITINIB MALATE
     Indication: GASTROINTESTINAL STROMAL TUMOUR
     Dosage: ?          OTHER FREQUENCY:ONCE DAILY;?
     Route: 048
     Dates: start: 20180731

REACTIONS (3)
  - Blood pressure increased [None]
  - Abdominal pain upper [None]
  - Pruritus [None]
